FAERS Safety Report 6023245-6 (Version None)
Quarter: 2008Q4

REPORT INFORMATION
  Report Type: 
  Country: None (occurrence: None)
  Receive Date: 20081230
  Receipt Date: 20081218
  Transmission Date: 20090506
  Serious: Yes (Disabling, Other)
  Sender: FDA-Public Use
  Company Number: US-ELI_LILLY_AND_COMPANY-US200811003725

PATIENT
  Sex: Female

DRUGS (8)
  1. FORTEO [Suspect]
     Indication: OSTEOPOROSIS
     Dosage: 20 UG, DAILY (1/D)
     Dates: start: 20080101
  2. LIPITOR [Concomitant]
     Dosage: 10 MG, DAILY (1/D)
     Route: 048
     Dates: start: 20080101
  3. ASPIRIN [Concomitant]
     Dosage: 81 MG, DAILY (1/D)
     Route: 048
  4. TRAMADOL [Concomitant]
     Dosage: UNK, AS NEEDED
  5. LISINOPRIL [Concomitant]
     Dosage: 20 MG, DAILY (1/D)
     Route: 048
  6. TORSEMIDE [Concomitant]
     Dosage: 20 MG, DAILY (1/D)
     Route: 048
  7. METOPROLOL SUCCINATE [Concomitant]
     Dosage: 12.5 MG, DAILY (1/D)
     Route: 048
  8. LEVOXYL [Concomitant]
     Dosage: 50 UG, DAILY (1/D)
     Route: 048

REACTIONS (3)
  - BULBAR PALSY [None]
  - DYSPNOEA [None]
  - OXYGEN SATURATION DECREASED [None]
